FAERS Safety Report 9293158 (Version 2)
Quarter: 2013Q2

REPORT INFORMATION
  Report Type: Spontaneous
  Country: DE (occurrence: None)
  Receive Date: 20130514
  Receipt Date: 20130613
  Transmission Date: 20140414
  Serious: Yes (Hospitalization)
  Sender: FDA-Public Use
  Company Number: USA/GER/13/0029509

PATIENT
  Age: 78 Year
  Sex: Female

DRUGS (5)
  1. PANTOPRAZOLE (PANTOPRAZOLE) [Suspect]
     Indication: HELICOBACTER TEST POSITIVE
  2. PANTOPRAZOLE (PANTOPRAZOLE) [Suspect]
     Indication: DUODENAL ULCER
  3. PANTOPRAZOLE (PANTOPRAZOLE) [Suspect]
     Indication: GASTRITIS EROSIVE
  4. AMOXICILLIN [Suspect]
     Indication: HELICOBACTER INFECTION
  5. CLARITHROMYCIN [Suspect]
     Indication: HELICOBACTER INFECTION

REACTIONS (21)
  - Tubulointerstitial nephritis [None]
  - Dyspnoea [None]
  - Renal failure acute [None]
  - Nephritis allergic [None]
  - Haemodialysis [None]
  - Congestive cardiomyopathy [None]
  - Pulmonary fibrosis [None]
  - Inferior vena cava dilatation [None]
  - Glomerulosclerosis [None]
  - Pleural effusion [None]
  - Dehydration [None]
  - Pulse pressure decreased [None]
  - Stasis dermatitis [None]
  - Renal tubular disorder [None]
  - Haemoglobin decreased [None]
  - Prothrombin time prolonged [None]
  - International normalised ratio increased [None]
  - Activated partial thromboplastin time prolonged [None]
  - Blood uric acid increased [None]
  - Glycosylated haemoglobin increased [None]
  - Blood pH decreased [None]
